FAERS Safety Report 4668226-X (Version None)
Quarter: 2005Q2

REPORT INFORMATION
  Report Type: 
  Country: None (occurrence: None)
  Receive Date: 20050523
  Receipt Date: 20050207
  Transmission Date: 20051028
  Serious: Yes (Other)
  Sender: FDA-Public Use
  Company Number: PHEH2005US01866

PATIENT
  Age: 63 Year
  Sex: Male

DRUGS (13)
  1. ZOMETA [Suspect]
     Indication: METASTASES TO BONE
     Dosage: 4 MG, QMO
     Route: 042
     Dates: start: 20020122
  2. MORPHINE SULFATE [Concomitant]
  3. PREVACID [Concomitant]
  4. DILTIAZEM [Concomitant]
  5. XANAX [Concomitant]
  6. FLUMOX [Concomitant]
  7. PAXIL [Concomitant]
  8. LISINOPRIL TABLETS (NGX) [Concomitant]
  9. VITAMIN C (NCH) [Concomitant]
  10. CALCIUM SANDOZ F (NCH) [Concomitant]
  11. INSULIN [Concomitant]
  12. ASPIRIN [Concomitant]
  13. REGLAN                                  /USA/ [Concomitant]

REACTIONS (6)
  - BONE DISORDER [None]
  - METASTASES TO BONE [None]
  - OSTEOMYELITIS [None]
  - OSTEONECROSIS [None]
  - RENAL CYST [None]
  - SINUSITIS [None]
